FAERS Safety Report 8169945-3 (Version None)
Quarter: 2012Q1

REPORT INFORMATION
  Report Type: 
  Country: None (occurrence: None)
  Receive Date: 20120228
  Receipt Date: 20120228
  Transmission Date: 20120608
  Serious: Yes (Hospitalization)
  Sender: FDA-Public Use
  Company Number: None

PATIENT
  Age: 67 Year
  Sex: Male

DRUGS (12)
  1. LISINOPRIL [Concomitant]
  2. NORCO [Concomitant]
  3. LASIX [Concomitant]
  4. LOPRESSOR [Suspect]
     Indication: ATRIAL FIBRILLATION
     Dosage: 25 MG
     Route: 048
     Dates: start: 20110725, end: 20110817
  5. LOPRESSOR [Suspect]
     Indication: HYPERTENSION
     Dosage: 25 MG
     Route: 048
     Dates: start: 20110725, end: 20110817
  6. DILTIAZEM HCL [Concomitant]
     Indication: HYPERTENSION
     Dosage: 240MG
     Route: 048
  7. FLOMAX [Concomitant]
  8. ZOCOR [Concomitant]
  9. SYMBICORT [Concomitant]
  10. POTASSIUM CHLORIDE [Concomitant]
  11. COUMADIN [Concomitant]
  12. PROTONIX [Concomitant]

REACTIONS (2)
  - SYNCOPE [None]
  - HYPOTENSION [None]
